FAERS Safety Report 8002811-2 (Version None)
Quarter: 2011Q4

REPORT INFORMATION
  Report Type: 
  Country: None (occurrence: None)
  Receive Date: 20111222
  Receipt Date: 20101130
  Transmission Date: 20120403
  Serious: No
  Sender: FDA-Public Use
  Company Number: US-GLAXOSMITHKLINE-A0888802A

PATIENT
  Age: 51 Year
  Sex: Male

DRUGS (2)
  1. NO CONCURRENT MEDICATION [Concomitant]
  2. AVODART [Suspect]
     Indication: BENIGN PROSTATIC HYPERPLASIA
     Dosage: 1TAB PER DAY
     Route: 048
     Dates: start: 20091001, end: 20101001

REACTIONS (3)
  - PROSTATITIS [None]
  - BENIGN PROSTATIC HYPERPLASIA [None]
  - POLLAKIURIA [None]
